FAERS Safety Report 6026095-X (Version None)
Quarter: 2009Q1

REPORT INFORMATION
  Report Type: 
  Country: None (occurrence: None)
  Receive Date: 20090102
  Receipt Date: 20081229
  Transmission Date: 20090719
  Serious: Yes (Hospitalization)
  Sender: FDA-Public Use
  Company Number: GB-TEVA-183149ISR

PATIENT
  Sex: Female

DRUGS (2)
  1. CITALOPRAM [Suspect]
  2. SUMATRIPTAN [Suspect]

REACTIONS (2)
  - DRUG INTERACTION [None]
  - EPILEPSY [None]
